FAERS Safety Report 4295960-6 (Version None)
Quarter: 2004Q1

REPORT INFORMATION
  Report Type: 
  Country: None (occurrence: None)
  Receive Date: 20040212
  Receipt Date: 20040204
  Transmission Date: 20041129
  Serious: No
  Sender: FDA-Public Use
  Company Number: 2004UW01918

PATIENT

DRUGS (1)
  1. TOPROL-XL [Suspect]

REACTIONS (1)
  - HEPATOCELLULAR DAMAGE [None]
